FAERS Safety Report 13381715 (Version 1)
Quarter: 2017Q1

REPORT INFORMATION
  Report Type: Spontaneous
  Country: SE (occurrence: SE)
  Receive Date: 20170329
  Receipt Date: 20170329
  Transmission Date: 20170429
  Serious: Yes (Hospitalization, Disabling)
  Sender: FDA-Public Use
  Company Number: PHHY2017SE040465

PATIENT
  Age: 65 Year
  Sex: Male

DRUGS (9)
  1. TEGRETOL [Interacting]
     Active Substance: CARBAMAZEPINE
     Indication: GAIT DISTURBANCE
  2. RISPERIDON ACTAVIS [Concomitant]
     Active Substance: RISPERIDONE
     Indication: PRODUCT USED FOR UNKNOWN INDICATION
     Dosage: UNK
     Route: 065
  3. CIPROFLOXACIN. [Suspect]
     Active Substance: CIPROFLOXACIN
     Indication: URINARY TRACT INFECTION
     Dosage: 1000 MG, QD
     Route: 048
     Dates: start: 20150519
  4. PARGITAN [Concomitant]
     Active Substance: TRIHEXYPHENIDYL HYDROCHLORIDE
     Indication: PRODUCT USED FOR UNKNOWN INDICATION
     Route: 065
  5. TROMBYL [Concomitant]
     Active Substance: ASPIRIN
     Indication: PRODUCT USED FOR UNKNOWN INDICATION
     Route: 065
  6. TEGRETOL [Interacting]
     Active Substance: CARBAMAZEPINE
     Indication: EPILEPSY
     Dosage: 400 MG, QD
     Route: 048
     Dates: start: 20140611
  7. TEGRETOL [Interacting]
     Active Substance: CARBAMAZEPINE
     Indication: TREMOR
  8. NITROLINGUAL [Concomitant]
     Active Substance: NITROGLYCERIN
     Indication: PRODUCT USED FOR UNKNOWN INDICATION
     Dosage: UNK
     Route: 065
  9. OMEPRAZOL PENSA [Concomitant]
     Active Substance: OMEPRAZOLE MAGNESIUM
     Indication: PRODUCT USED FOR UNKNOWN INDICATION
     Route: 065

REACTIONS (2)
  - Drug interaction [Recovered/Resolved with Sequelae]
  - Liver function test abnormal [Recovered/Resolved with Sequelae]

NARRATIVE: CASE EVENT DATE: 20150526
